FAERS Safety Report 7636057-4 (Version None)
Quarter: 2011Q3

REPORT INFORMATION
  Report Type: 
  Country: None (occurrence: None)
  Receive Date: 20110726
  Receipt Date: 20110720
  Transmission Date: 20111222
  Serious: Yes (Hospitalization)
  Sender: FDA-Public Use
  Company Number: PH-PFIZER INC-2011164107

PATIENT
  Age: 53 Year
  Sex: Female

DRUGS (4)
  1. FENTANYL [Concomitant]
     Dosage: UNKNOWN
  2. ZYVOX [Suspect]
     Indication: BRONCHOPNEUMONIA
     Dosage: UNKNOWN
  3. LEXAPRO [Concomitant]
     Dosage: UNKNOWN
  4. MORPHINE [Concomitant]
     Dosage: UNKNOWN

REACTIONS (2)
  - CHILLS [None]
  - TREMOR [None]
